FAERS Safety Report 11525707 (Version 6)
Quarter: 2016Q1

REPORT INFORMATION
  Report Type: Spontaneous
  Country: US (occurrence: US)
  Receive Date: 20150918
  Receipt Date: 20160108
  Transmission Date: 20160525
  Serious: Yes (Hospitalization, Other)
  Sender: FDA-Public Use
  Company Number: US-GLAXOSMITHKLINE-US2015GSK133534

PATIENT
  Age: 73 Year
  Sex: Male

DRUGS (2)
  1. VENTOLIN HFA [Suspect]
     Active Substance: ALBUTEROL SULFATE
     Indication: DYSPNOEA
  2. VENTOLIN HFA [Suspect]
     Active Substance: ALBUTEROL SULFATE
     Indication: ASTHMA
     Dosage: 2 PUFF(S), QID
     Route: 065

REACTIONS (14)
  - Dyspnoea [Unknown]
  - Cardiac operation [Recovered/Resolved]
  - Living in residential institution [Not Recovered/Not Resolved]
  - Cardiac disorder [Recovered/Resolved]
  - Pleural effusion [Unknown]
  - Pulmonary congestion [Unknown]
  - Therapy cessation [Unknown]
  - Asthenia [Unknown]
  - Coronary artery occlusion [Recovered/Resolved]
  - Myocardial infarction [Unknown]
  - Rehabilitation therapy [Not Recovered/Not Resolved]
  - Chronic obstructive pulmonary disease [Unknown]
  - Blood immunoglobulin E decreased [Unknown]
  - Atelectasis [Unknown]

NARRATIVE: CASE EVENT DATE: 20141226
